FAERS Safety Report 20903623 (Version 1)
Quarter: 2022Q2

REPORT INFORMATION
  Report Type: Spontaneous
  Country: SE (occurrence: SE)
  Receive Date: 20220602
  Receipt Date: 20220602
  Transmission Date: 20220721
  Serious: Yes (Disabling)
  Sender: FDA-Public Use
  Company Number: None

PATIENT
  Age: 11 Year
  Sex: Male

DRUGS (2)
  1. MONTELUKAST [Suspect]
     Active Substance: MONTELUKAST SODIUM
     Indication: Hypersensitivity
     Dosage: UNIT DOSE : 4 MG , DURATION : 6 YEARS
     Dates: start: 2016, end: 20220413
  2. CAREDIN [Concomitant]

REACTIONS (6)
  - Psychomotor hyperactivity [Unknown]
  - Depression [Unknown]
  - Disturbance in attention [Unknown]
  - Anxiety [Unknown]
  - Fatigue [Unknown]
  - Irritability [Unknown]
